FAERS Safety Report 6830523-7 (Version None)
Quarter: 2010Q3

REPORT INFORMATION
  Report Type: 
  Country: None (occurrence: None)
  Receive Date: 20100712
  Receipt Date: 20100630
  Transmission Date: 20110219
  Serious: No
  Sender: FDA-Public Use
  Company Number: 2009BI033794

PATIENT
  Age: 35 Year
  Sex: Female

DRUGS (1)
  1. TYSABRI [Suspect]
     Indication: MULTIPLE SCLEROSIS
     Route: 042
     Dates: start: 20070816

REACTIONS (8)
  - FATIGUE [None]
  - LIBIDO DECREASED [None]
  - MENSTRUATION IRREGULAR [None]
  - PAIN IN EXTREMITY [None]
  - RASH PRURITIC [None]
  - URINARY TRACT INFECTION [None]
  - VAGINITIS VIRAL [None]
  - WEIGHT INCREASED [None]
